FAERS Safety Report 10674412 (Version 1)
Quarter: 2014Q4

REPORT INFORMATION
  Report Type: Spontaneous
  Country: IT (occurrence: None)
  Receive Date: 20141222
  Receipt Date: 20141222
  Transmission Date: 20150529
  Serious: Yes (Hospitalization)
  Sender: FDA-Public Use
  Company Number: NSR_01731_2014

PATIENT
  Age: 46 Year
  Sex: Female

DRUGS (2)
  1. ALLOPURINOL. [Suspect]
     Active Substance: ALLOPURINOL
     Indication: BLOOD URIC ACID INCREASED
  2. PREDNISONE. [Suspect]
     Active Substance: PREDNISONE
     Indication: PRODUCT USED FOR UNKNOWN INDICATION

REACTIONS (11)
  - Drug reaction with eosinophilia and systemic symptoms [None]
  - Asthenia [None]
  - Generalised oedema [None]
  - Granuloma [None]
  - Hepatitis acute [None]
  - Nervous system disorder [None]
  - Lymphadenopathy [None]
  - Pericardial effusion [None]
  - Pyrexia [None]
  - General physical health deterioration [None]
  - Pleural effusion [None]
